FAERS Safety Report 25462229 (Version 1)
Quarter: 2025Q2

REPORT INFORMATION
  Report Type: Spontaneous
  Country: US (occurrence: US)
  Receive Date: 20250620
  Receipt Date: 20250620
  Transmission Date: 20250716
  Serious: No
  Sender: AMARIN
  Company Number: US-Amarin Pharma  Inc-2025AMR000338

PATIENT
  Age: 71 Year
  Sex: Female

DRUGS (3)
  1. VASCEPA [Suspect]
     Active Substance: ICOSAPENT ETHYL
     Indication: Blood triglycerides increased
     Dates: start: 2023
  2. SIMVASTATIN [Concomitant]
     Active Substance: SIMVASTATIN
  3. ESOMEPRAZOLE MAGNESIUM [Concomitant]
     Active Substance: ESOMEPRAZOLE MAGNESIUM

REACTIONS (4)
  - Poor quality product administered [Unknown]
  - Product odour abnormal [Unknown]
  - Product colour issue [Unknown]
  - Product physical issue [Unknown]
